FAERS Safety Report 8019198-1 (Version None)
Quarter: 2011Q4

REPORT INFORMATION
  Report Type: 
  Country: None (occurrence: None)
  Receive Date: 20111227
  Receipt Date: 20111213
  Transmission Date: 20120403
  Serious: Yes (Hospitalization, Other)
  Sender: FDA-Public Use
  Company Number: 2011-000047

PATIENT
  Age: 55 Year
  Sex: Female

DRUGS (8)
  1. PYRIDOXINE HYDROCHLORIDE (PYRIDOXINE HYDROCHLORIDE) [Concomitant]
  2. MULTIVIT (VITAMINS NOS) [Concomitant]
  3. LANSOPRAZOLE [Concomitant]
  4. PROMETHAZINE HYDROCHLORIDE [Concomitant]
  5. GLUCOSAMINE (GLUCOSAMINE) [Concomitant]
  6. COLECALCIFEROL (COLECALCIFEROL) [Concomitant]
  7. ACTONEL [Suspect]
     Dosage: ORAL
     Route: 048
  8. LEVOTHYROXINE SODIUM [Concomitant]

REACTIONS (5)
  - VOMITING [None]
  - GASTROOESOPHAGEAL REFLUX DISEASE [None]
  - OESOPHAGEAL STENOSIS [None]
  - WEIGHT DECREASED [None]
  - DEHYDRATION [None]
